FAERS Safety Report 4813735-3 (Version None)
Quarter: 2005Q4

REPORT INFORMATION
  Report Type: 
  Country: None (occurrence: None)
  Receive Date: 20051028
  Receipt Date: 20050311
  Transmission Date: 20060501
  Serious: No
  Sender: FDA-Public Use
  Company Number: US-GLAXOSMITHKLINE-A0549463A

PATIENT
  Sex: Male

DRUGS (2)
  1. ADVAIR DISKUS 100/50 [Suspect]
     Indication: ASTHMA
     Route: 055
  2. UNSPECIFIED INHALER [Concomitant]

REACTIONS (4)
  - GLOSSODYNIA [None]
  - MOUTH ULCERATION [None]
  - ORAL MUCOSAL EXFOLIATION [None]
  - SWOLLEN TONGUE [None]
